FAERS Safety Report 20355956 (Version 1)
Quarter: 2022Q1

REPORT INFORMATION
  Report Type: Spontaneous
  Country: US (occurrence: None)
  Receive Date: 20220119
  Receipt Date: 20220119
  Transmission Date: 20220423
  Serious: Yes (Other)
  Sender: FDA-Public Use
  Company Number: None

PATIENT
  Age: 32 Year
  Sex: Female

DRUGS (2)
  1. BAMLANIVIMAB\ETESEVIMAB [Suspect]
     Active Substance: BAMLANIVIMAB\ETESEVIMAB
     Indication: COVID-19
     Route: 011
     Dates: start: 20220119, end: 20220119
  2. bam/ete [Concomitant]
     Dates: start: 20220119, end: 20220119

REACTIONS (2)
  - Dizziness [None]
  - Flushing [None]

NARRATIVE: CASE EVENT DATE: 20220119
